FAERS Safety Report 22625693 (Version 1)
Quarter: 2023Q2

REPORT INFORMATION
  Report Type: Spontaneous
  Country: US (occurrence: None)
  Receive Date: 20230617
  Receipt Date: 20230617
  Transmission Date: 20230722
  Serious: Yes (Other)
  Sender: FDA-Public Use
  Company Number: None

PATIENT
  Age: 61 Year
  Sex: Male

DRUGS (17)
  1. LENALIDOMIDE [Suspect]
     Active Substance: LENALIDOMIDE
     Indication: Plasma cell myeloma
     Dosage: FREQUENCY : AS DIRECTED;?
     Route: 048
     Dates: start: 20221229
  2. LENALIDOMIDE [Suspect]
     Active Substance: LENALIDOMIDE
     Dosage: FREQUENCY : AS DIRECTED;?
     Route: 048
  3. ACYCLOVIR [Concomitant]
  4. ALLOPURINOL [Concomitant]
  5. FLUCONAZOLE [Concomitant]
  6. FOLIC ACID [Concomitant]
  7. GABAPENTIN [Concomitant]
  8. HUMALOG [Concomitant]
     Active Substance: INSULIN LISPRO
  9. LISINOPRIL [Concomitant]
  10. METFORMIN [Concomitant]
  11. METHYLPREDNISOLONE [Concomitant]
     Active Substance: METHYLPREDNISOLONE
  12. MIDODRINE [Concomitant]
  13. ONDANSETRON [Concomitant]
  14. OZEMPIC [Concomitant]
  15. PROCHLORPER [Concomitant]
  16. REVLIMID [Concomitant]
     Active Substance: LENALIDOMIDE
  17. VALACYCLOVIR [Concomitant]
     Active Substance: VALACYCLOVIR HYDROCHLORIDE

REACTIONS (1)
  - Pneumonia [None]

NARRATIVE: CASE EVENT DATE: 20230502
